FAERS Safety Report 9224348 (Version 1)
Quarter: 2013Q1

REPORT INFORMATION
  Report Type: Spontaneous
  Country: US (occurrence: None)
  Receive Date: 20120914
  Receipt Date: 20120914
  Transmission Date: 20140127
  Serious: Yes (Hospitalization)
  Sender: FDA-Public Use
  Company Number: JPI-P-021130

PATIENT
  Age: 77 Year
  Sex: Female

DRUGS (1)
  1. XYREM [Suspect]
     Indication: TREMOR
     Dosage: (2.25 GM 2 IN 1 D)
     Route: 048
     Dates: start: 20101104

REACTIONS (1)
  - Fall [None]
